FAERS Safety Report 11458070 (Version 1)
Quarter: 2015Q3

REPORT INFORMATION
  Report Type: Spontaneous
  Country: US (occurrence: None)
  Receive Date: 20150903
  Receipt Date: 20150903
  Transmission Date: 20151125
  Serious: Yes (Life-Threatening, Hospitalization, Disabling, Other)
  Sender: FDA-Public Use
  Company Number: None

PATIENT
  Age: 65 Year
  Sex: Male
  Weight: 86.18 kg

DRUGS (5)
  1. SACCHAROMYCES BOULARDII (FLORASTRO) [Concomitant]
  2. TYLENOL [Concomitant]
     Active Substance: ACETAMINOPHEN
  3. VANCOMYCIN (CLEOCIN) [Concomitant]
  4. CLINDAMYCIN [Suspect]
     Active Substance: CLINDAMYCIN\CLINDAMYCIN PHOSPHATE
     Indication: EAR INFECTION
     Route: 048
     Dates: start: 20150816, end: 20150822
  5. METRONIDAZOLE. [Concomitant]
     Active Substance: METRONIDAZOLE

REACTIONS (6)
  - Clostridium difficile colitis [None]
  - Asthenia [None]
  - Pyrexia [None]
  - Nausea [None]
  - Heart rate increased [None]
  - Feeding disorder [None]

NARRATIVE: CASE EVENT DATE: 20150823
